FAERS Safety Report 14475498 (Version 1)
Quarter: 2018Q1

REPORT INFORMATION
  Report Type: Spontaneous
  Country: US (occurrence: US)
  Receive Date: 20180201
  Receipt Date: 20180201
  Transmission Date: 20180509
  Serious: Yes (Other)
  Sender: FDA-Public Use
  Company Number: US-SA-2018SA023586

PATIENT
  Age: 37 Year
  Sex: Female

DRUGS (2)
  1. LEVOCETIRIZINE [Suspect]
     Active Substance: LEVOCETIRIZINE
     Indication: HYPERSENSITIVITY
     Route: 048
     Dates: start: 201609
  2. XYZAL ALLERGY 24HR [Suspect]
     Active Substance: LEVOCETIRIZINE DIHYDROCHLORIDE
     Indication: HYPERSENSITIVITY
     Route: 048
     Dates: start: 201609

REACTIONS (4)
  - Ankle fracture [Recovering/Resolving]
  - Weight increased [Unknown]
  - Loss of consciousness [Unknown]
  - Hypersomnia [Unknown]

NARRATIVE: CASE EVENT DATE: 201705
